FAERS Safety Report 22652355 (Version 1)
Quarter: 2023Q2

REPORT INFORMATION
  Report Type: Spontaneous
  Country: US (occurrence: US)
  Receive Date: 20230628
  Receipt Date: 20230628
  Transmission Date: 20230721
  Serious: Yes (Death, Hospitalization)
  Sender: FDA-Public Use
  Company Number: US-STRIDES ARCOLAB LIMITED-2023SP010040

PATIENT
  Age: 33 Year
  Sex: Male

DRUGS (9)
  1. CARBOPLATIN [Suspect]
     Active Substance: CARBOPLATIN
     Indication: Squamous cell carcinoma
     Dosage: UNK
     Route: 065
  2. ETOPOSIDE [Suspect]
     Active Substance: ETOPOSIDE
     Indication: Lung carcinoma cell type unspecified stage IV
     Dosage: UNK, A SECOND-LINE REGIMEN
     Route: 065
  3. ETOPOSIDE [Suspect]
     Active Substance: ETOPOSIDE
     Indication: Squamous cell carcinoma
  4. PACLITAXEL [Suspect]
     Active Substance: PACLITAXEL
     Indication: Squamous cell carcinoma
     Dosage: UNK
     Route: 065
  5. PEMBROLIZUMAB [Suspect]
     Active Substance: PEMBROLIZUMAB
     Indication: Squamous cell carcinoma
     Dosage: UNK
     Route: 065
  6. IFOSFAMIDE [Suspect]
     Active Substance: IFOSFAMIDE
     Indication: Lung carcinoma cell type unspecified stage IV
     Dosage: UNK, A SECOND-LINE REGIMEN
     Route: 065
  7. IFOSFAMIDE [Suspect]
     Active Substance: IFOSFAMIDE
     Indication: Squamous cell carcinoma
  8. VORINOSTAT [Suspect]
     Active Substance: VORINOSTAT
     Indication: Lung carcinoma cell type unspecified stage IV
     Dosage: UNK, A SECOND-LINE REGIMEN
     Route: 065
  9. VORINOSTAT [Suspect]
     Active Substance: VORINOSTAT
     Indication: Squamous cell carcinoma

REACTIONS (3)
  - Death [Fatal]
  - Septic shock [Unknown]
  - Drug ineffective for unapproved indication [Unknown]
